FAERS Safety Report 15935940 (Version 2)
Quarter: 2019Q1

REPORT INFORMATION
  Report Type: Report from Study
  Country: BR (occurrence: BR)
  Receive Date: 20190208
  Receipt Date: 20190220
  Transmission Date: 20190417
  Serious: Yes (Hospitalization, Other)
  Sender: FDA-Public Use
  Company Number: BR-HORIZON-PRO-0022-2019

PATIENT
  Age: 6 Year
  Sex: Male

DRUGS (9)
  1. FERRIPOLYMALTOSE [Concomitant]
     Dosage: 42 DROPS ONCE A DAY
  2. CALCITRIOL. [Concomitant]
     Active Substance: CALCITRIOL
     Dosage: 0.25 MCG-4 CAPSULES ONCE A DAY
  3. RP103 [Suspect]
     Active Substance: CYSTEAMINE BITARTRATE
     Indication: CYSTINOSIS
     Dosage: 400 MG
     Dates: start: 20150428, end: 20190117
  4. CALCIUM CARBONATE. [Concomitant]
     Active Substance: CALCIUM CARBONATE
  5. LEVOTHYROXINE. [Concomitant]
     Active Substance: LEVOTHYROXINE
     Dosage: 25 MCG-1,25 CP ONCE A DAY
  6. RECOMBINANT ERYTHROPOIETIN [Concomitant]
     Dosage: 1500 UI TWICE A WEEK
     Route: 058
  7. VITAMIN D [Concomitant]
     Active Substance: CHOLECALCIFEROL
     Dosage: 200 UI/DROP-5 DROPS ONCE A DAY
  8. SODIUM BICARBONATE 10% [Concomitant]
     Dosage: 6 CP 8/8 H
  9. AMLODIPINE [Concomitant]
     Active Substance: AMLODIPINE BESYLATE
     Dosage: 7.5 MG/CP-12/12H

REACTIONS (2)
  - Renal impairment [Not Recovered/Not Resolved]
  - Vomiting [Recovered/Resolved with Sequelae]

NARRATIVE: CASE EVENT DATE: 20190116
